FAERS Safety Report 9151210 (Version 1)
Quarter: 2013Q1

REPORT INFORMATION
  Report Type: Spontaneous
  Country: None (occurrence: None)
  Receive Date: 20130201
  Receipt Date: 20130201
  Transmission Date: 20140127
  Serious: Yes (Life-Threatening, Hospitalization)
  Sender: FDA-Public Use
  Company Number: DKLU1088558

PATIENT
  Age: 8 Month
  Sex: Male

DRUGS (1)
  1. SABRIL [Suspect]
     Dosage: 500 MG MILLIGRAM(S), 1 IN 8 HR, ORAL
     Route: 048
     Dates: start: 20121008, end: 20121020

REACTIONS (2)
  - Bradycardia [None]
  - Hypotension [None]
